FAERS Safety Report 17169364 (Version 3)
Quarter: 2020Q1

REPORT INFORMATION
  Report Type: Report from Study
  Country: CA (occurrence: CA)
  Receive Date: 20191218
  Receipt Date: 20200311
  Transmission Date: 20200409
  Serious: Yes (Other)
  Sender: FDA-Public Use
  Company Number: CA-PFIZER INC-2019537790

PATIENT
  Age: 3 Month

DRUGS (5)
  1. VINCRISTINE SULFATE. [Suspect]
     Active Substance: VINCRISTINE SULFATE
     Indication: RETINOBLASTOMA
     Dosage: 0.025 MG/KG/DOSE FOR THE FIRST CYCLE
     Route: 065
  2. VINCRISTINE SULFATE. [Suspect]
     Active Substance: VINCRISTINE SULFATE
     Dosage: 0.05 MG/KG/ DOSE FOR THE SUBSEQUENT CYCLES
     Route: 065
  3. TENIPOSIDE. [Concomitant]
     Active Substance: TENIPOSIDE
     Indication: RETINOBLASTOMA
     Route: 065
  4. CARBOPLATIN. [Suspect]
     Active Substance: CARBOPLATIN
     Indication: RETINOBLASTOMA
     Dosage: 28 MG/KG/DOSE, UNK
     Route: 065
  5. CICLOSPORIN A [Suspect]
     Active Substance: CYCLOSPORINE
     Indication: MULTIPLE-DRUG RESISTANCE
     Dosage: 33 MG/KG/DOSE FOR TWO DAYS
     Route: 065

REACTIONS (1)
  - Deafness [Unknown]
